FAERS Safety Report 18079385 (Version 1)
Quarter: 2020Q3

REPORT INFORMATION
  Report Type: Report from Study
  Country: CO (occurrence: CO)
  Receive Date: 20200728
  Receipt Date: 20200728
  Transmission Date: 20201103
  Serious: Yes (Hospitalization, Other)
  Sender: FDA-Public Use
  Company Number: CO-ACTELION-A-CH2020-207591

PATIENT
  Sex: Female
  Weight: 67 kg

DRUGS (5)
  1. TRACLEER [Suspect]
     Active Substance: BOSENTAN
     Dosage: 125 MG, BID
     Route: 048
  2. ILOPROST. [Suspect]
     Active Substance: ILOPROST
     Indication: PULMONARY ARTERIAL HYPERTENSION
     Route: 065
  3. TRACLEER [Suspect]
     Active Substance: BOSENTAN
     Indication: PULMONARY ARTERIAL HYPERTENSION
     Dosage: 1 DF, QD
     Route: 048
  4. TADALAFIL. [Concomitant]
     Active Substance: TADALAFIL
  5. RIOCIGUAT. [Suspect]
     Active Substance: RIOCIGUAT
     Indication: PULMONARY ARTERIAL HYPERTENSION
     Route: 065

REACTIONS (5)
  - Uterine leiomyoma [Not Recovered/Not Resolved]
  - Inappropriate schedule of product administration [Unknown]
  - Headache [Unknown]
  - Neuralgia [Unknown]
  - Cervical conisation [Not Recovered/Not Resolved]

NARRATIVE: CASE EVENT DATE: 2018
